FAERS Safety Report 4325015-3 (Version None)
Quarter: 2004Q1

REPORT INFORMATION
  Report Type: 
  Country: None (occurrence: None)
  Receive Date: 20040326
  Receipt Date: 20040223
  Transmission Date: 20041129
  Serious: Yes (Death)
  Sender: FDA-Public Use
  Company Number: US-ROCHE-359775

PATIENT
  Age: 52 Year
  Sex: Female

DRUGS (1)
  1. VERSED [Suspect]
     Indication: SEDATION
     Route: 042
     Dates: start: 20040220, end: 20040220

REACTIONS (1)
  - PNEUMONIA ASPIRATION [None]
